FAERS Safety Report 24820443 (Version 1)
Quarter: 2025Q1

REPORT INFORMATION
  Report Type: Spontaneous
  Country: CN (occurrence: CN)
  Receive Date: 20250108
  Receipt Date: 20250108
  Transmission Date: 20250409
  Serious: Yes (Hospitalization, Other)
  Sender: GE HEALTHCARE
  Company Number: CN-GE HEALTHCARE-2025CSU000121

PATIENT
  Age: 64 Year
  Sex: Male
  Weight: 80 kg

DRUGS (3)
  1. VISIPAQUE [Suspect]
     Active Substance: IODIXANOL
     Indication: Angiocardiogram
     Route: 042
     Dates: start: 20241219, end: 20241219
  2. VISIPAQUE [Suspect]
     Active Substance: IODIXANOL
     Indication: Arterial angioplasty
  3. VISIPAQUE [Suspect]
     Active Substance: IODIXANOL
     Indication: Coronary arterial stent insertion

REACTIONS (3)
  - Blister [Recovering/Resolving]
  - Flushing [Recovering/Resolving]
  - Swelling [Recovering/Resolving]

NARRATIVE: CASE EVENT DATE: 20241219
